FAERS Safety Report 9295639 (Version 1)
Quarter: 2013Q1

REPORT INFORMATION
  Report Type: Spontaneous
  Country: US (occurrence: None)
  Receive Date: 20121227
  Receipt Date: 20121227
  Transmission Date: 20140127
  Serious: Yes (Hospitalization)
  Sender: FDA-Public Use
  Company Number: PHEH2011US008564

PATIENT
  Age: 52 Year
  Sex: Female

DRUGS (1)
  1. EXJADE [Suspect]
     Indication: CHRONIC MYELOMONOCYTIC LEUKAEMIA
     Route: 048
     Dates: start: 20090812

REACTIONS (3)
  - Bacterial infection [None]
  - Malaise [None]
  - Abdominal pain upper [None]
